FAERS Safety Report 20897928 (Version 1)
Quarter: 2022Q2

REPORT INFORMATION
  Report Type: Report from Study
  Country: US (occurrence: US)
  Receive Date: 20220531
  Receipt Date: 20220531
  Transmission Date: 20220721
  Serious: Yes (Hospitalization)
  Sender: FDA-Public Use
  Company Number: US-ABBVIE-22P-163-4409070-00

PATIENT
  Sex: Male

DRUGS (3)
  1. VENETOCLAX [Suspect]
     Active Substance: VENETOCLAX
     Indication: Acute myeloid leukaemia
     Dosage: 50 MG ON 4/19 (DAY 2), 70 MG ON 4/20- 5/15(DAY 3-28)
     Route: 048
     Dates: start: 20220418
  2. MAGROLIMAB [Concomitant]
     Active Substance: MAGROLIMAB
     Indication: Acute myeloid leukaemia
     Dosage: GIVEN ON DAYS(1, 4, 8, 11, 15, 22) 4/18, 4/21, 4/25, 4/28, 5/2, 5/29
     Route: 065
     Dates: start: 20220418
  3. AZACITIDINE [Concomitant]
     Active Substance: AZACITIDINE
     Indication: Acute myeloid leukaemia
     Dosage: GIVEN ON DAY 1-7 (4/18-4/24)
     Route: 065
     Dates: start: 20220418

REACTIONS (1)
  - Penile infection [Recovered/Resolved]

NARRATIVE: CASE EVENT DATE: 20220517
